FAERS Safety Report 5015014-0 (Version None)
Quarter: 2006Q2

REPORT INFORMATION
  Report Type: 
  Country: None (occurrence: None)
  Receive Date: 20060425
  Receipt Date: 20050228
  Transmission Date: 20061013
  Serious: Yes (Other)
  Sender: FDA-Public Use
  Company Number: WAES 0412USA00064

PATIENT
  Age: 3 Year
  Sex: Male

DRUGS (1)
  1. SINGULAIR [Suspect]
     Indication: HYPERSENSITIVITY
     Dosage: 4 MG/DAILY/PO
     Route: 048
     Dates: start: 20020101, end: 20030401

REACTIONS (3)
  - CONVULSION [None]
  - HALLUCINATION [None]
  - INSOMNIA [None]
